FAERS Safety Report 4406454-9 (Version None)
Quarter: 2004Q3

REPORT INFORMATION
  Report Type: 
  Country: None (occurrence: None)
  Receive Date: 20040723
  Receipt Date: 20030925
  Transmission Date: 20050211
  Serious: Yes (Hospitalization, Disabling, Other)
  Sender: FDA-Public Use
  Company Number: US-MERCK-0309USA02996

PATIENT
  Age: 41 Year
  Sex: Male
  Weight: 118 kg

DRUGS (2)
  1. VIOXX [Suspect]
     Indication: PAIN
     Route: 048
     Dates: start: 19990801, end: 20021201
  2. VIOXX [Suspect]
     Indication: BACK INJURY
     Route: 048
     Dates: start: 19990801, end: 20021201

REACTIONS (35)
  - ABDOMINAL DISCOMFORT [None]
  - ACCIDENT AT WORK [None]
  - ANKLE FRACTURE [None]
  - ANXIETY [None]
  - BACK INJURY [None]
  - CHEST PAIN [None]
  - CONSTIPATION [None]
  - DEPRESSION [None]
  - DRY MOUTH [None]
  - DYSGEUSIA [None]
  - DYSPNOEA [None]
  - EMOTIONAL DISORDER [None]
  - ERECTILE DYSFUNCTION [None]
  - HEADACHE [None]
  - HEART RATE IRREGULAR [None]
  - HYPERTENSION [None]
  - INTERVERTEBRAL DISC DEGENERATION [None]
  - INTERVERTEBRAL DISC PROTRUSION [None]
  - JOINT INJURY [None]
  - JOINT SPRAIN [None]
  - MAJOR DEPRESSION [None]
  - MYOFASCIAL PAIN SYNDROME [None]
  - NAUSEA [None]
  - ORCHITIS [None]
  - OSTEOARTHRITIS [None]
  - PAIN [None]
  - PALPITATIONS [None]
  - PATELLOFEMORAL PAIN SYNDROME [None]
  - PRURITUS [None]
  - PYREXIA [None]
  - RADICULITIS LUMBOSACRAL [None]
  - TACHYCARDIA [None]
  - TENDONITIS [None]
  - TINNITUS [None]
  - URINARY INCONTINENCE [None]
